FAERS Safety Report 5012073-6 (Version None)
Quarter: 2006Q2

REPORT INFORMATION
  Report Type: 
  Country: None (occurrence: None)
  Receive Date: 20060526
  Receipt Date: 20060516
  Transmission Date: 20061013
  Serious: Yes (Life-Threatening, Hospitalization)
  Sender: FDA-Public Use
  Company Number: ES-GLAXOSMITHKLINE-B0425055A

PATIENT
  Age: 52 Year
  Sex: Female

DRUGS (5)
  1. MELPHALAN [Suspect]
     Indication: CHEMOTHERAPY
     Route: 065
  2. HERCEPTIN [Suspect]
     Indication: CHEMOTHERAPY
     Route: 065
  3. DOCETAXEL [Suspect]
     Indication: CHEMOTHERAPY
     Route: 065
  4. CARBOPLATIN [Suspect]
     Indication: CHEMOTHERAPY
     Route: 065
  5. ANTHRACYCLINES [Concomitant]
     Indication: CHEMOTHERAPY
     Route: 065

REACTIONS (4)
  - COLITIS [None]
  - HYPERAMMONAEMIA [None]
  - MENTAL IMPAIRMENT [None]
  - MULTI-ORGAN FAILURE [None]
